FAERS Safety Report 5149116-5 (Version None)
Quarter: 2006Q4

REPORT INFORMATION
  Report Type: 
  Country: None (occurrence: None)
  Receive Date: 20061113
  Receipt Date: 20060731
  Transmission Date: 20070319
  Serious: No
  Sender: FDA-Public Use
  Company Number: US-GLAXOSMITHKLINE-A0614160A

PATIENT
  Age: 80 Year
  Sex: Male

DRUGS (4)
  1. COREG [Suspect]
     Dosage: 25MG TWICE PER DAY
     Route: 048
  2. LISINOPRIL [Concomitant]
  3. DITROPAN [Concomitant]
  4. ZOCOR [Concomitant]

REACTIONS (2)
  - EJECTION FRACTION [None]
  - HYPOTENSION [None]
